FAERS Safety Report 9725974 (Version 1)
Quarter: 2013Q4

REPORT INFORMATION
  Report Type: Spontaneous
  Country: US (occurrence: None)
  Receive Date: 20131202
  Receipt Date: 20131202
  Transmission Date: 20140711
  Serious: Yes (Hospitalization)
  Sender: FDA-Public Use
  Company Number: None

PATIENT
  Age: 50 Year
  Sex: Male
  Weight: 113.6 kg

DRUGS (2)
  1. SIMVASTATIN [Suspect]
     Indication: HIV INFECTION
     Route: 048
     Dates: start: 20090201, end: 20131115
  2. ZIDOVUDINE [Suspect]
     Route: 048
     Dates: start: 20050701, end: 20131120

REACTIONS (3)
  - Blood creatine phosphokinase increased [None]
  - Transaminases increased [None]
  - Rhabdomyolysis [None]
